FAERS Safety Report 10366877 (Version 1)
Quarter: 2014Q3

REPORT INFORMATION
  Report Type: Spontaneous
  Country: DK (occurrence: DK)
  Receive Date: 20140807
  Receipt Date: 20140807
  Transmission Date: 20150326
  Serious: Yes (Hospitalization)
  Sender: FDA-Public Use
  Company Number: DK-UCBSA-2014007973

PATIENT
  Age: 26 Year
  Sex: Male

DRUGS (3)
  1. IMUREL [Suspect]
     Active Substance: AZATHIOPRINE SODIUM
     Indication: CROHN^S DISEASE
     Dosage: UNK
  2. CIMZIA [Suspect]
     Active Substance: CERTOLIZUMAB PEGOL
     Indication: CROHN^S DISEASE
     Dosage: 400 MG, EV 2 WEEKS(QOW)
     Dates: start: 200909, end: 2013
  3. TYSABRI [Suspect]
     Active Substance: NATALIZUMAB
     Indication: CROHN^S DISEASE
     Dosage: UNK
     Dates: start: 2013

REACTIONS (4)
  - Histiocytosis haematophagic [Recovered/Resolved]
  - Malaise [Unknown]
  - Pyrexia [Unknown]
  - Hodgkin^s disease [Recovered/Resolved]

NARRATIVE: CASE EVENT DATE: 201312
